FAERS Safety Report 14965470 (Version 1)
Quarter: 2018Q2

REPORT INFORMATION
  Report Type: Spontaneous
  Country: HR (occurrence: HR)
  Receive Date: 20180601
  Receipt Date: 20180601
  Transmission Date: 20180711
  Serious: Yes (Other)
  Sender: FDA-Public Use
  Company Number: HR-ANIPHARMA-2018-HR-000006

PATIENT
  Age: 77 Year
  Sex: Male
  Weight: 85 kg

DRUGS (1)
  1. BICALUTAMIDE. [Suspect]
     Active Substance: BICALUTAMIDE
     Dosage: 50 MG DAILY
     Route: 048
     Dates: start: 20180202, end: 20180203

REACTIONS (4)
  - Chest pain [Unknown]
  - Skin fissures [Unknown]
  - Rash pruritic [Unknown]
  - Choking [Unknown]

NARRATIVE: CASE EVENT DATE: 20180203
